FAERS Safety Report 9490928 (Version 1)
Quarter: 2013Q3

REPORT INFORMATION
  Report Type: Report from Study
  Country: NL (occurrence: NL)
  Receive Date: 20130830
  Receipt Date: 20130830
  Transmission Date: 20140515
  Serious: Yes (Other)
  Sender: FDA-Public Use
  Company Number: NL-UCBSA-096536

PATIENT
  Sex: 0

DRUGS (1)
  1. LEVETIRACETAM [Suspect]

REACTIONS (1)
  - Status epilepticus [Unknown]
